FAERS Safety Report 5886154-9 (Version None)
Quarter: 2008Q3

REPORT INFORMATION
  Report Type: 
  Country: None (occurrence: None)
  Receive Date: 20080917
  Receipt Date: 20080911
  Transmission Date: 20090109
  Serious: Yes (Hospitalization)
  Sender: FDA-Public Use
  Company Number: IT-BAYER-200826185GPV

PATIENT
  Age: 57 Year
  Sex: Male

DRUGS (2)
  1. AVELOX [Suspect]
     Indication: BRONCHOPNEUMONIA
     Dosage: TOTAL DAILY DOSE: 400 MG  UNIT DOSE: 400 MG
     Route: 048
     Dates: start: 20080725, end: 20080802
  2. AUGMENTIN '200' [Suspect]
     Indication: UPPER RESPIRATORY TRACT INFLAMMATION
     Dosage: TOTAL DAILY DOSE: 2 G  UNIT DOSE: 1 G
     Route: 048
     Dates: start: 20080721, end: 20080801

REACTIONS (1)
  - HEPATITIS ACUTE [None]
